FAERS Safety Report 9034683 (Version 1)
Quarter: 2013Q1

REPORT INFORMATION
  Report Type: Spontaneous
  Country: JP (occurrence: JP)
  Receive Date: 20130128
  Receipt Date: 20130128
  Transmission Date: 20140127
  Serious: Yes (Hospitalization)
  Sender: FDA-Public Use
  Company Number: JP-GLAXOSMITHKLINE-B0855140A

PATIENT
  Age: 73 Year
  Sex: Male

DRUGS (10)
  1. LAMICTAL [Suspect]
     Indication: EPILEPSY
     Dosage: 25MG ALTERNATE DAYS
     Route: 048
     Dates: start: 20121026, end: 20121108
  2. LAMICTAL [Suspect]
     Indication: EPILEPSY
     Dosage: 25MG PER DAY
     Route: 048
     Dates: start: 20121109, end: 20121119
  3. LAMICTAL [Suspect]
     Indication: EPILEPSY
     Dosage: 50MG PER DAY
     Route: 048
     Dates: start: 20121120, end: 20121205
  4. MIRTAZAPINE [Concomitant]
     Indication: DEPRESSION
     Dosage: 7.5MG PER DAY
     Route: 048
     Dates: start: 201207, end: 20121205
  5. REMINYL [Concomitant]
     Indication: DEMENTIA
     Dosage: 8MG TWICE PER DAY
     Route: 048
     Dates: start: 201207, end: 20121208
  6. E KEPPRA [Concomitant]
     Indication: EPILEPSY
     Route: 048
     Dates: start: 20120809, end: 20121119
  7. E KEPPRA [Concomitant]
     Indication: EPILEPSY
     Route: 048
     Dates: start: 20121120, end: 20121208
  8. GASTER D [Concomitant]
     Dosage: 10MG TWICE PER DAY
     Route: 048
     Dates: start: 201207, end: 20121208
  9. AVOLVE [Concomitant]
     Dosage: .5MG PER DAY
     Route: 048
     Dates: start: 201207, end: 20121208
  10. URIEF [Concomitant]
     Dosage: 4MG PER DAY
     Route: 048
     Dates: start: 201207, end: 20121208

REACTIONS (2)
  - Drug eruption [Recovered/Resolved]
  - Depression [Unknown]
